FAERS Safety Report 7044665-7 (Version None)
Quarter: 2010Q3

REPORT INFORMATION
  Report Type: 
  Country: None (occurrence: None)
  Receive Date: 20100929
  Receipt Date: 20100624
  Transmission Date: 20110219
  Serious: No
  Sender: FDA-Public Use
  Company Number: US-WYE-H16179010

PATIENT
  Age: 60 Year
  Sex: Female
  Weight: 120.76 kg

DRUGS (13)
  1. PRISTIQ [Suspect]
     Indication: DEPRESSION
     Dosage: 50 MG 1X PER 1 DAY, ORAL
     Route: 048
     Dates: start: 20100602
  2. AMBIEN CR [Concomitant]
  3. ATIVAN [Concomitant]
  4. OMEPRAZOLE [Concomitant]
  5. LEVOTHYROXINE [Concomitant]
  6. VERAPAMIL - SLOW RELEASE (VERAPAMIL HYDROCHLORIDE) [Concomitant]
  7. PERCOCET [Concomitant]
  8. SIMVASTATIN [Concomitant]
  9. METFORMIN HCL [Concomitant]
  10. ASPIRIN [Concomitant]
  11. FERROUS SULFATE [Concomitant]
  12. BENTYL [Concomitant]
  13. FLEXERIL [Concomitant]

REACTIONS (3)
  - CONDITION AGGRAVATED [None]
  - FATIGUE [None]
  - INSOMNIA [None]
